FAERS Safety Report 23933027 (Version 1)
Quarter: 2024Q2

REPORT INFORMATION
  Report Type: Spontaneous
  Country: US (occurrence: None)
  Receive Date: 20240602
  Receipt Date: 20240602
  Transmission Date: 20240716
  Serious: Yes (Other)
  Sender: FDA-Public Use
  Company Number: None

PATIENT
  Age: 65 Year
  Sex: Female
  Weight: 78.75 kg

DRUGS (6)
  1. LEQVIO [Suspect]
     Active Substance: INCLISIRAN SODIUM
     Indication: Blood cholesterol increased
     Route: 058
  2. NADOLOL [Concomitant]
     Active Substance: NADOLOL
  3. VITAMIN D [Concomitant]
     Active Substance: VITAMIN D NOS
  4. CEPHALEXIN [Concomitant]
     Active Substance: CEPHALEXIN
  5. TYLENOL [Concomitant]
     Active Substance: ACETAMINOPHEN
  6. ADVIL [Concomitant]
     Active Substance: IBUPROFEN\IBUPROFEN SODIUM

REACTIONS (9)
  - Injection site erythema [None]
  - Injection site pruritus [None]
  - Injection site warmth [None]
  - Pyrexia [None]
  - Fatigue [None]
  - Headache [None]
  - Skin exfoliation [None]
  - Blood pressure increased [None]
  - Pain in extremity [None]

NARRATIVE: CASE EVENT DATE: 20240515
